FAERS Safety Report 12214499 (Version 2)
Quarter: 2016Q2

REPORT INFORMATION
  Report Type: Spontaneous
  Country: CA (occurrence: CA)
  Receive Date: 20160328
  Receipt Date: 20160421
  Transmission Date: 20160815
  Serious: Yes (Hospitalization, Other)
  Sender: FDA-Public Use
  Company Number: PHHY2016CA024044

PATIENT
  Age: 63 Year
  Sex: Female

DRUGS (1)
  1. IRBESARTAN SANDOZ [Suspect]
     Active Substance: IRBESARTAN
     Indication: HYPERTENSION
     Dosage: 300 MG, QD
     Route: 065
     Dates: start: 2010

REACTIONS (5)
  - Asthma [Unknown]
  - Joint injury [Unknown]
  - Disturbance in attention [Unknown]
  - Ankle fracture [Unknown]
  - Fall [Unknown]

NARRATIVE: CASE EVENT DATE: 201603
